FAERS Safety Report 12624846 (Version 1)
Quarter: 2016Q3

REPORT INFORMATION
  Report Type: Spontaneous
  Country: US (occurrence: US)
  Receive Date: 20160805
  Receipt Date: 20160805
  Transmission Date: 20161109
  Serious: Yes (Other)
  Sender: FDA-Public Use
  Company Number: US-ASTRAZENECA-2016SE83155

PATIENT
  Age: 44 Year
  Sex: Female
  Weight: 49.9 kg

DRUGS (8)
  1. FLONASE [Concomitant]
     Active Substance: FLUTICASONE PROPIONATE
     Dosage: 50 MCG. SHE TOOK 2 SPRAYS DAILY
  2. ESTRACE [Concomitant]
     Active Substance: ESTRADIOL
     Route: 048
     Dates: start: 20131102
  3. CRESTOR [Suspect]
     Active Substance: ROSUVASTATIN CALCIUM
     Indication: BLOOD CHOLESTEROL INCREASED
     Route: 048
     Dates: start: 2003
  4. CRESTOR [Suspect]
     Active Substance: ROSUVASTATIN CALCIUM
     Indication: BLOOD CHOLESTEROL INCREASED
     Route: 048
  5. FLOVENT [Concomitant]
     Active Substance: FLUTICASONE PROPIONATE
     Dosage: HAS 110 MG, 2 PUFFS DAILY
  6. LIOTHYRONINE [Concomitant]
     Active Substance: LIOTHYRONINE
     Dosage: 25 MCG TWICE A DAY
     Dates: start: 2014
  7. NUVIGIL [Concomitant]
     Active Substance: ARMODAFINIL
     Dosage: 250 MG. DAILY
     Route: 048
  8. XANAX [Concomitant]
     Active Substance: ALPRAZOLAM
     Dosage: NEEDED DAILY, SHE MAY TAKE 2MG TO 10 MG

REACTIONS (10)
  - Asthma [Unknown]
  - Blood pressure fluctuation [Unknown]
  - Hypothyroidism [Unknown]
  - Depression [Unknown]
  - Insomnia [Unknown]
  - Chest pain [Unknown]
  - Chest discomfort [Unknown]
  - Cardiac murmur [Unknown]
  - Anxiety [Unknown]
  - Ventricular extrasystoles [Unknown]

NARRATIVE: CASE EVENT DATE: 2013
